FAERS Safety Report 4985326-5 (Version None)
Quarter: 2006Q1

REPORT INFORMATION
  Report Type: 
  Country: None (occurrence: None)
  Receive Date: 20060309
  Receipt Date: 20050627
  Transmission Date: 20060701
  Serious: Yes (Other)
  Sender: FDA-Public Use
  Company Number: 409162

PATIENT

DRUGS (4)
  1. ACCUTANE [Suspect]
     Indication: DRUG USE FOR UNKNOWN INDICATION
     Dosage: 40 MG 2 PER DAY ORAL
     Route: 048
     Dates: start: 19960615, end: 19960615
  2. TOPAMAX [Concomitant]
  3. CIPRO [Concomitant]
  4. MIGRANIN (CAFFEINE/CITRIC ACID/PHENAZONE) [Concomitant]

REACTIONS (2)
  - NO ADVERSE EFFECT [None]
  - PREGNANCY [None]
